FAERS Safety Report 18872055 (Version 1)
Quarter: 2021Q1

REPORT INFORMATION
  Report Type: Spontaneous
  Country: US (occurrence: US)
  Receive Date: 20210210
  Receipt Date: 20210210
  Transmission Date: 20210420
  Serious: Yes (Hospitalization)
  Sender: FDA-Public Use
  Company Number: None

PATIENT
  Age: 61 Year
  Sex: Female
  Weight: 104.8 kg

DRUGS (2)
  1. BAMLANIVIMAB. [Suspect]
     Active Substance: BAMLANIVIMAB
     Indication: COVID-19
     Dosage: ?          OTHER FREQUENCY:ONCE;?
     Route: 042
  2. SALINE 0.9% INFUSION [Concomitant]
     Dates: start: 20210209, end: 20210209

REACTIONS (13)
  - Breath sounds absent [None]
  - Tachycardia [None]
  - Skin discolouration [None]
  - Moaning [None]
  - Foaming at mouth [None]
  - Hyperventilation [None]
  - Dysphonia [None]
  - Confusional state [None]
  - Hypotonia [None]
  - Fatigue [None]
  - Agitation [None]
  - Heart rate increased [None]
  - Bradycardia [None]

NARRATIVE: CASE EVENT DATE: 20210209
